FAERS Safety Report 25433767 (Version 1)
Quarter: 2025Q2

REPORT INFORMATION
  Report Type: Spontaneous
  Country: ES (occurrence: ES)
  Receive Date: 20250613
  Receipt Date: 20250613
  Transmission Date: 20250716
  Serious: Yes (Other)
  Sender: MYLAN
  Company Number: ES-MYLANLABS-2025M1049773

PATIENT
  Age: 39 Year
  Sex: Male

DRUGS (28)
  1. GABAPENTIN [Suspect]
     Active Substance: GABAPENTIN
     Indication: Cancer pain
     Dosage: 600 MILLIGRAM, Q8H
  2. GABAPENTIN [Suspect]
     Active Substance: GABAPENTIN
     Dosage: 600 MILLIGRAM, Q8H
     Route: 065
  3. GABAPENTIN [Suspect]
     Active Substance: GABAPENTIN
     Dosage: 600 MILLIGRAM, Q8H
     Route: 065
  4. GABAPENTIN [Suspect]
     Active Substance: GABAPENTIN
     Dosage: 600 MILLIGRAM, Q8H
  5. METAMIZOLE [Suspect]
     Active Substance: METAMIZOLE
     Indication: Cancer pain
     Dosage: 1 GRAM, Q8H
  6. METAMIZOLE [Suspect]
     Active Substance: METAMIZOLE
     Dosage: 1 GRAM, Q8H
     Route: 065
  7. METAMIZOLE [Suspect]
     Active Substance: METAMIZOLE
     Dosage: 1 GRAM, Q8H
     Route: 065
  8. METAMIZOLE [Suspect]
     Active Substance: METAMIZOLE
     Dosage: 1 GRAM, Q8H
  9. METHADONE [Suspect]
     Active Substance: METHADONE HYDROCHLORIDE
     Indication: Cancer pain
     Dosage: 50 MILLIGRAM, Q8H
  10. METHADONE [Suspect]
     Active Substance: METHADONE HYDROCHLORIDE
     Dosage: 50 MILLIGRAM, Q8H
     Route: 048
  11. METHADONE [Suspect]
     Active Substance: METHADONE HYDROCHLORIDE
     Dosage: 50 MILLIGRAM, Q8H
     Route: 048
  12. METHADONE [Suspect]
     Active Substance: METHADONE HYDROCHLORIDE
     Dosage: 50 MILLIGRAM, Q8H
  13. KETAMINE [Suspect]
     Active Substance: KETAMINE
     Indication: Cancer pain
     Dosage: 20 MILLIGRAM, Q8H
  14. KETAMINE [Suspect]
     Active Substance: KETAMINE
     Dosage: 20 MILLIGRAM, Q8H
     Route: 065
  15. KETAMINE [Suspect]
     Active Substance: KETAMINE
     Dosage: 20 MILLIGRAM, Q8H
     Route: 065
  16. KETAMINE [Suspect]
     Active Substance: KETAMINE
     Dosage: 20 MILLIGRAM, Q8H
  17. CLONAZEPAM [Suspect]
     Active Substance: CLONAZEPAM
     Indication: Cancer pain
     Dosage: 0.5 MILLIGRAM, BID (12 HOURS)
  18. CLONAZEPAM [Suspect]
     Active Substance: CLONAZEPAM
     Dosage: 0.5 MILLIGRAM, BID (12 HOURS)
     Route: 065
  19. CLONAZEPAM [Suspect]
     Active Substance: CLONAZEPAM
     Dosage: 0.5 MILLIGRAM, BID (12 HOURS)
     Route: 065
  20. CLONAZEPAM [Suspect]
     Active Substance: CLONAZEPAM
     Dosage: 0.5 MILLIGRAM, BID (12 HOURS)
  21. LIDOCAINE [Suspect]
     Active Substance: LIDOCAINE
     Indication: Cancer pain
  22. LIDOCAINE [Suspect]
     Active Substance: LIDOCAINE
     Route: 061
  23. LIDOCAINE [Suspect]
     Active Substance: LIDOCAINE
     Route: 061
  24. LIDOCAINE [Suspect]
     Active Substance: LIDOCAINE
  25. PAZOPANIB [Concomitant]
     Active Substance: PAZOPANIB
     Indication: Acute myeloid leukaemia
  26. PAZOPANIB [Concomitant]
     Active Substance: PAZOPANIB
     Route: 065
  27. PAZOPANIB [Concomitant]
     Active Substance: PAZOPANIB
     Route: 065
  28. PAZOPANIB [Concomitant]
     Active Substance: PAZOPANIB

REACTIONS (1)
  - Drug ineffective [Unknown]

NARRATIVE: CASE EVENT DATE: 20240101
